FAERS Safety Report 15266219 (Version 4)
Quarter: 2019Q1

REPORT INFORMATION
  Report Type: Spontaneous
  Country: AT (occurrence: AT)
  Receive Date: 20180810
  Receipt Date: 20190121
  Transmission Date: 20190417
  Serious: Yes (Other)
  Sender: FDA-Public Use
  Company Number: AT-JNJFOC-20180809631

PATIENT
  Age: 62 Year
  Sex: Female
  Weight: 68 kg

DRUGS (30)
  1. MEXALEN [Concomitant]
     Active Substance: ACETAMINOPHEN
     Dosage: DAY 2 TO DAY 5 POST CHT (CHEMOTHERAPY)
     Route: 065
  2. ITERIUM [Concomitant]
     Active Substance: RILMENIDINE
     Dosage: 0-1-0
     Route: 065
  3. SPIRONO [Concomitant]
     Dosage: 1/2-0-0
     Route: 065
  4. PANTOLOC [Concomitant]
     Active Substance: PANTOPRAZOLE SODIUM
     Dosage: 1-0-0
     Route: 065
  5. ALLOPURINOL. [Concomitant]
     Active Substance: ALLOPURINOL
     Dosage: 0-0-1
     Route: 065
  6. ELIQUIS [Concomitant]
     Active Substance: APIXABAN
     Dosage: 1-0-1, UNDER CLOSE BLOOD COUNT-SUPERVISION DURING THE CHEMOTHERAPY
     Route: 065
  7. CAELYX [Suspect]
     Active Substance: DOXORUBICIN HYDROCHLORIDE
     Indication: OVARIAN CANCER
     Dosage: CYCLE 1
     Route: 042
     Dates: start: 20180412, end: 2018
  8. THROMBO ASS [Concomitant]
     Active Substance: ASPIRIN
     Dosage: 0-1-0
     Route: 065
     Dates: end: 20180909
  9. HYCAMTIN [Concomitant]
     Active Substance: TOPOTECAN HYDROCHLORIDE
     Route: 065
  10. SPIRONO [Concomitant]
     Dosage: 1/2-0-0
     Route: 065
  11. PROCORALAN [Concomitant]
     Active Substance: IVABRADINE
     Dosage: 1-0-1
     Route: 065
  12. ZOFRAN [Concomitant]
     Active Substance: ONDANSETRON HYDROCHLORIDE
     Dosage: FOR 5 DAYS
     Route: 065
  13. NEULASTA [Concomitant]
     Active Substance: PEGFILGRASTIM
     Dosage: 1X1 24-48H POST CHT (CHEMOTHERAPY)
     Route: 058
  14. CRESTOR [Concomitant]
     Active Substance: ROSUVASTATIN CALCIUM
     Dosage: 0-0-1
     Route: 065
  15. CONCOR [Concomitant]
     Active Substance: BISOPROLOL FUMARATE
     Route: 065
  16. DEXABENE [Concomitant]
     Dosage: IN 100 ML NACL 0,9% IV
     Route: 042
     Dates: start: 20180412
  17. CRESTOR [Concomitant]
     Active Substance: ROSUVASTATIN CALCIUM
     Dosage: 0-0-1
     Route: 065
  18. ELIQUIS [Concomitant]
     Active Substance: APIXABAN
     Dosage: 1-0-1
     Route: 065
  19. DEXABENE [Concomitant]
     Dosage: 100 ML 0,9% NACL IV
     Route: 042
     Dates: start: 20180413
  20. DEXAMETHASONE. [Concomitant]
     Active Substance: DEXAMETHASONE
     Dosage: 1-0-1, (24, 36, 48, 60, 72 H) AFTER CHEMO
     Route: 065
     Dates: end: 20180415
  21. ENTRESTO [Concomitant]
     Active Substance: SACUBITRIL\VALSARTAN
     Dosage: SUMMER MONTH 1/2-0-1/2
     Route: 065
  22. ONDANSETRON [Concomitant]
     Active Substance: ONDANSETRON
     Route: 042
     Dates: start: 20180412
  23. ONDANSETRON [Concomitant]
     Active Substance: ONDANSETRON
     Route: 042
     Dates: start: 20180413
  24. ENTRESTO [Concomitant]
     Active Substance: SACUBITRIL\VALSARTAN
     Dosage: 1-0-1
     Route: 065
  25. NOMEXOR [Concomitant]
     Active Substance: NEBIVOLOL HYDROCHLORIDE
     Dosage: 1-0-1
     Route: 065
  26. ALLOPURINOL. [Concomitant]
     Active Substance: ALLOPURINOL
     Dosage: 1-0-1
     Route: 065
  27. YONDELIS [Suspect]
     Active Substance: TRABECTEDIN
     Indication: OVARIAN CANCER
     Dosage: CYCLE 1
     Route: 042
     Dates: start: 20180412, end: 2018
  28. AGOPTON [Concomitant]
     Active Substance: LANSOPRAZOLE
     Dosage: FOR THE DURATION OF THE CHEMOTHERAPY
     Route: 065
  29. PANTOLOC [Concomitant]
     Active Substance: PANTOPRAZOLE SODIUM
     Dosage: 1-0-0
     Route: 065
  30. EPOETIN THETA [Concomitant]
     Active Substance: ERYTHROPOIETIN
     Dosage: 30 000 1 X/WEEK - ON 8-SEP-2018 THE NEXT DOSE
     Route: 065

REACTIONS (1)
  - Myocardial infarction [Recovering/Resolving]

NARRATIVE: CASE EVENT DATE: 201804
